FAERS Safety Report 25667375 (Version 1)
Quarter: 2025Q3

REPORT INFORMATION
  Report Type: Spontaneous
  Country: PS (occurrence: PS)
  Receive Date: 20250811
  Receipt Date: 20250811
  Transmission Date: 20251021
  Serious: Yes (Hospitalization)
  Sender: MERCK SHARP & DOHME LLC
  Company Number: PS-009507513-2317261

PATIENT
  Age: 57 Year
  Sex: Male

DRUGS (4)
  1. SITAGLIPTIN [Suspect]
     Active Substance: SITAGLIPTIN
     Route: 048
  2. ASPIRIN [Concomitant]
     Active Substance: ASPIRIN
  3. LEVOTHYROXINE [Concomitant]
     Active Substance: LEVOTHYROXINE
  4. INSULIN NOS [Concomitant]
     Active Substance: INSULIN NOS
     Dosage: TWICE DAILY

REACTIONS (1)
  - Euglycaemic diabetic ketoacidosis [Recovered/Resolved]
